FAERS Safety Report 7392394-2 (Version None)
Quarter: 2011Q2

REPORT INFORMATION
  Report Type: 
  Country: None (occurrence: None)
  Receive Date: 20110404
  Receipt Date: 20110322
  Transmission Date: 20111010
  Serious: Yes (Hospitalization, Other)
  Sender: FDA-Public Use
  Company Number: US-ELI_LILLY_AND_COMPANY-US201008004480

PATIENT
  Sex: Female

DRUGS (11)
  1. VASOTEC [Concomitant]
  2. SYNTHROID [Concomitant]
  3. LOPRESSOR [Concomitant]
  4. HYDROCODONE BITARTRATE [Concomitant]
  5. FORTEO [Suspect]
     Indication: OSTEOPOROSIS
     Dosage: 20 UG, DAILY (1/D)
     Route: 065
     Dates: start: 20100801
  6. IMDUR [Concomitant]
  7. PLAVIX [Concomitant]
  8. CENTRUM SILVER [Concomitant]
  9. FLEXERIL [Concomitant]
  10. FORTEO [Suspect]
     Dosage: 20 UG, QD
     Route: 065
  11. ASPIRIN [Concomitant]

REACTIONS (7)
  - MEDICATION ERROR [None]
  - CARDIAC DISORDER [None]
  - CARDIAC FAILURE CONGESTIVE [None]
  - HEART RATE IRREGULAR [None]
  - STENT PLACEMENT [None]
  - OEDEMA PERIPHERAL [None]
  - DRY MOUTH [None]
